FAERS Safety Report 17250858 (Version 1)
Quarter: 2020Q1

REPORT INFORMATION
  Report Type: Spontaneous
  Country: US (occurrence: US)
  Receive Date: 20200109
  Receipt Date: 20200109
  Transmission Date: 20200409
  Serious: No
  Sender: FDA-Public Use
  Company Number: US-AUROBINDO-AUR-APL-2019-012457

PATIENT

DRUGS (1)
  1. OXYCODONE HYDROCHLORIDE TABLETS USP 5 MG [Suspect]
     Active Substance: OXYCODONE HYDROCHLORIDE
     Indication: PAIN
     Dosage: 02 TABLETS ON 26-FEB2019 AND NONE AFTER THAT
     Route: 065
     Dates: start: 20190226, end: 20190227

REACTIONS (4)
  - Back pain [Recovered/Resolved]
  - Initial insomnia [Recovered/Resolved]
  - Blood pressure increased [Recovered/Resolved]
  - Swelling face [Recovered/Resolved]

NARRATIVE: CASE EVENT DATE: 20190226
